FAERS Safety Report 25002190 (Version 2)
Quarter: 2025Q1

REPORT INFORMATION
  Report Type: Spontaneous
  Country: US (occurrence: US)
  Receive Date: 20250224
  Receipt Date: 20250301
  Transmission Date: 20250409
  Serious: No
  Sender: SANOFI AVENTIS
  Company Number: US-SA-2025SA050902

PATIENT
  Age: 80 Year
  Sex: Female

DRUGS (8)
  1. REZUROCK [Suspect]
     Active Substance: BELUMOSUDIL
     Indication: Graft versus host disease
     Dosage: 200 MG, QD
     Route: 048
     Dates: start: 202402
  2. VITAMIN D3 [Concomitant]
     Active Substance: CHOLECALCIFEROL
  3. VITAMINS [Concomitant]
     Active Substance: VITAMINS
  4. SENNA [Concomitant]
     Active Substance: SENNOSIDES
  5. ACYCLOVIR [Concomitant]
     Active Substance: ACYCLOVIR
  6. GABAPENTIN [Concomitant]
     Active Substance: GABAPENTIN
  7. MILK OF MAGNESIA [Concomitant]
     Active Substance: MAGNESIUM HYDROXIDE
  8. AMLODIPINE [Concomitant]
     Active Substance: AMLODIPINE BESYLATE

REACTIONS (1)
  - Constipation [Recovering/Resolving]
